FAERS Safety Report 19893435 (Version 3)
Quarter: 2021Q4

REPORT INFORMATION
  Report Type: Other
  Country: KR (occurrence: None)
  Receive Date: 20210929
  Receipt Date: 20211103
  Transmission Date: 20220303
  Serious: Yes (Other)
  Sender: FDA-Public Use
  Company Number: KR-ROCHE-2917045

PATIENT

DRUGS (2)
  1. BEVACIZUMAB [Suspect]
     Active Substance: BEVACIZUMAB
     Indication: Macular oedema
     Route: 050
  2. DEXAMETHASONE [Suspect]
     Active Substance: DEXAMETHASONE
     Indication: Macular oedema
     Route: 050

REACTIONS (16)
  - Suspected transmission of an infectious agent via product [Unknown]
  - Intraocular pressure increased [Unknown]
  - Endophthalmitis [Unknown]
  - Macular hole [Unknown]
  - Off label use [Unknown]
  - Conjunctivitis allergic [Unknown]
  - Ocular discomfort [Unknown]
  - Eye pain [Unknown]
  - Conjunctival haemorrhage [Unknown]
  - Cataract [Unknown]
  - Chorioretinopathy [Unknown]
  - Conjunctival disorder [Unknown]
  - Dizziness [Unknown]
  - Eye haemorrhage [Unknown]
  - Ocular hyperaemia [Unknown]
  - Pingueculitis [Unknown]
